FAERS Safety Report 11168212 (Version 1)
Quarter: 2015Q2

REPORT INFORMATION
  Report Type: Spontaneous
  Country: US (occurrence: None)
  Receive Date: 20150515
  Receipt Date: 20150515
  Transmission Date: 20150821
  Serious: Yes (Other)
  Sender: FDA-Public Use
  Company Number: 2014008991

PATIENT
  Age: 57 Year
  Sex: Female
  Weight: 48 kg

DRUGS (10)
  1. VITAMIN C (CALCIUM ASCORBATE) [Concomitant]
  2. POTASSIUM CHLORIDE. [Concomitant]
     Active Substance: POTASSIUM CHLORIDE
  3. REPLESTA (COLECALCIFEROL) [Concomitant]
  4. PANTOPRAZOLE [Concomitant]
     Active Substance: PANTOPRAZOLE SODIUM
  5. NASONEX [Concomitant]
     Active Substance: MOMETASONE FUROATE
  6. CIMZIA [Suspect]
     Active Substance: CERTOLIZUMAB PEGOL
     Indication: CROHN^S DISEASE
     Dosage: EV 4 WEEKS
     Route: 058
     Dates: start: 20140710, end: 2014
  7. VITAMIN D3 [Concomitant]
     Active Substance: CHOLECALCIFEROL
  8. CANASA (MESALAZINE) [Concomitant]
  9. HUMIRA [Concomitant]
     Active Substance: ADALIMUMAB
  10. ENTOCORT EC (BUDESONIDE) [Concomitant]

REACTIONS (5)
  - Herpes zoster [None]
  - Back pain [None]
  - Paraesthesia [None]
  - Tremor [None]
  - Pyrexia [None]

NARRATIVE: CASE EVENT DATE: 20140710
